FAERS Safety Report 5005815-7 (Version None)
Quarter: 2006Q2

REPORT INFORMATION
  Report Type: 
  Country: None (occurrence: None)
  Receive Date: 20060517
  Receipt Date: 20060517
  Transmission Date: 20061013
  Serious: Yes (Hospitalization)
  Sender: FDA-Public Use
  Company Number: None

PATIENT
  Age: 42 Year
  Sex: Male

DRUGS (8)
  1. METHADONE HCL [Suspect]
     Indication: PAIN
     Dosage: 5MG Q8H
     Dates: start: 20050401
  2. LISINOPRIL [Concomitant]
  3. VIT B12 [Concomitant]
  4. LORTAB [Concomitant]
  5. CLOPIDOGREL [Concomitant]
  6. ZOCOR [Concomitant]
  7. POTASSIUM CHLORIDE [Concomitant]
  8. METFORMIN [Concomitant]

REACTIONS (1)
  - SYNCOPE [None]
